FAERS Safety Report 8284056-4 (Version None)
Quarter: 2012Q2

REPORT INFORMATION
  Report Type: 
  Country: None (occurrence: None)
  Receive Date: 20120413
  Receipt Date: 20110825
  Transmission Date: 20120825
  Serious: No
  Sender: FDA-Public Use
  Company Number: US-ASTRAZENECA-2010SE17499

PATIENT
  Sex: Female

DRUGS (3)
  1. NEXIUM [Suspect]
     Route: 048
  2. VYTORIN [Concomitant]
  3. ACYCLOVIR [Concomitant]

REACTIONS (2)
  - DRUG DOSE OMISSION [None]
  - MALAISE [None]
